FAERS Safety Report 8328006-0 (Version None)
Quarter: 2012Q2

REPORT INFORMATION
  Report Type: 
  Country: None (occurrence: None)
  Receive Date: 20120502
  Receipt Date: 20120501
  Transmission Date: 20120825
  Serious: No
  Sender: FDA-Public Use
  Company Number: US-PFIZER INC-2010085184

PATIENT
  Sex: Male
  Weight: 95.238 kg

DRUGS (16)
  1. SERTRALINE HYDROCHLORIDE [Concomitant]
     Indication: DEPRESSED MOOD
     Dosage: 50 MG, 1X/DAY
     Route: 048
  2. METHADONE [Concomitant]
     Indication: NEUROPATHY PERIPHERAL
     Dosage: 10 MG, 3X/DAY
     Route: 048
     Dates: start: 20090101
  3. LIPITOR [Concomitant]
     Indication: BLOOD CHOLESTEROL ABNORMAL
     Dosage: 40 MG, 1X/DAY
     Route: 048
  4. SINGULAIR [Concomitant]
     Indication: ASTHMA
     Dosage: UNK, DAILY
     Route: 048
  5. COUMADIN [Concomitant]
     Dosage: UNK
     Route: 048
  6. METFORMIN [Concomitant]
     Indication: CARDIAC DISORDER
     Dosage: 10 MG, 3X/DAY
     Route: 048
  7. AVODART [Concomitant]
     Dosage: UNK
     Route: 048
  8. FUROSEMIDE [Concomitant]
     Indication: CARDIAC DISORDER
     Dosage: 40 MG, 1X/DAY
     Route: 048
  9. RELISTOR [Suspect]
     Indication: CONSTIPATION
     Dosage: UNKNOWN
     Route: 058
     Dates: start: 20110512, end: 20110516
  10. METHADONE [Concomitant]
     Indication: PAIN
  11. ADVAIR DISKUS 100/50 [Concomitant]
     Indication: ASTHMA
     Dosage: 250/50
  12. NEURONTIN [Concomitant]
     Indication: SLEEP DISORDER
     Dosage: 300 MG, 1X/DAY
     Route: 048
  13. METOPROLOL [Concomitant]
     Indication: CARDIAC DISORDER
     Dosage: 25 MG, 1X/DAY
     Route: 048
  14. VICODIN [Concomitant]
     Dosage: UNK
     Route: 048
  15. SERTRALINE HYDROCHLORIDE [Concomitant]
     Indication: ANTIDEPRESSANT THERAPY
  16. DIGOXIN [Concomitant]
     Indication: CARDIAC DISORDER
     Dosage: 0.25 MG, 1X/DAY
     Route: 048

REACTIONS (1)
  - DIARRHOEA [None]
